FAERS Safety Report 24929135 (Version 1)
Quarter: 2025Q1

REPORT INFORMATION
  Report Type: Spontaneous
  Country: NZ (occurrence: NZ)
  Receive Date: 20250205
  Receipt Date: 20250205
  Transmission Date: 20250409
  Serious: Yes (Hospitalization, Other)
  Sender: BOEHRINGER INGELHEIM
  Company Number: NZ-BoehringerIngelheim-2025-BI-005844

PATIENT
  Sex: Male

DRUGS (1)
  1. JARDIANCE [Suspect]
     Active Substance: EMPAGLIFLOZIN
     Indication: Diabetes mellitus
     Dates: start: 20230202, end: 20250128

REACTIONS (4)
  - Acute kidney injury [Recovering/Resolving]
  - Ketoacidosis [Recovering/Resolving]
  - Illness [Unknown]
  - Dehydration [Unknown]

NARRATIVE: CASE EVENT DATE: 20250128
